FAERS Safety Report 10222361 (Version 3)
Quarter: 2016Q2

REPORT INFORMATION
  Report Type: Spontaneous
  Country: KR (occurrence: KR)
  Receive Date: 20140606
  Receipt Date: 20160530
  Transmission Date: 20160815
  Serious: Yes (Other)
  Sender: FDA-Public Use
  Company Number: KR-JNJFOC-20130906615

PATIENT

DRUGS (3)
  1. INFLIXIMAB, RECOMBINANT [Suspect]
     Active Substance: INFLIXIMAB
     Indication: ANKYLOSING SPONDYLITIS
     Dosage: LOADING DOSE: ONCE EVERY 0,2, AND 6 WEEKSMAINTENANCE DOSE: EVERY 14, 22, 30,38,46 AND 54 WEEKS
     Route: 042
  2. CETIRIZINE [Concomitant]
     Active Substance: CETIRIZINE HYDROCHLORIDE
     Indication: PREMEDICATION
     Route: 065
  3. CHLORPHENIRAMINE. [Concomitant]
     Active Substance: CHLORPHENIRAMINE
     Indication: PREMEDICATION
     Dosage: 2-4 MG DOSE
     Route: 065

REACTIONS (19)
  - Cardiac disorder [Unknown]
  - Pharyngitis [Unknown]
  - Nausea [Unknown]
  - Nasopharyngitis [Unknown]
  - Latent tuberculosis [Unknown]
  - Adverse event [Unknown]
  - Infusion related reaction [Unknown]
  - Drug specific antibody present [Unknown]
  - Bacteriuria [Unknown]
  - Aspartate aminotransferase increased [Unknown]
  - Alanine aminotransferase increased [Unknown]
  - Infection [Unknown]
  - Leukopenia [Unknown]
  - Rash [Unknown]
  - Upper respiratory tract infection [Unknown]
  - Gamma-glutamyltransferase increased [Unknown]
  - Neutropenia [Unknown]
  - Urticaria [Unknown]
  - Tonsillitis [Unknown]
